FAERS Safety Report 5164957-6 (Version None)
Quarter: 2006Q4

REPORT INFORMATION
  Report Type: 
  Country: None (occurrence: None)
  Receive Date: 20061124
  Receipt Date: 20061113
  Transmission Date: 20070319
  Serious: Yes (Other)
  Sender: FDA-Public Use
  Company Number: 2006141648

PATIENT
  Age: 19 Year
  Sex: Male

DRUGS (1)
  1. GEODON [Suspect]
     Indication: DEPRESSION
     Dosage: 160 MG (80 MG, 2 IN 1 D), ORAL
     Route: 048
     Dates: start: 20060201, end: 20061001

REACTIONS (5)
  - ASTHENOPIA [None]
  - DYSGRAPHIA [None]
  - GASTRIC DISORDER [None]
  - HALLUCINATION, AUDITORY [None]
  - TREMOR [None]
